FAERS Safety Report 6219876-0 (Version None)
Quarter: 2009Q2

REPORT INFORMATION
  Report Type: 
  Country: None (occurrence: None)
  Receive Date: 20090609
  Receipt Date: 20090528
  Transmission Date: 20091009
  Serious: Yes (Hospitalization, Other)
  Sender: FDA-Public Use
  Company Number: US-ROCHE-634091

PATIENT
  Age: 52 Year
  Sex: Male

DRUGS (4)
  1. PEGASYS [Suspect]
     Indication: HEPATITIS C
     Dosage: FORM: PRE FILLED SYRINGE
     Route: 065
  2. RIBAVIRIN [Suspect]
     Indication: HEPATITIS C
     Dosage: RIBAVIRIN 200 MG
     Route: 048
  3. OXYCONTIN [Concomitant]
  4. KLONOPIN [Concomitant]
     Dosage: 3 TIMES A DAY FOR THE PAST YEAR

REACTIONS (4)
  - HEPATIC ENCEPHALOPATHY [None]
  - PAIN [None]
  - PLATELET COUNT DECREASED [None]
  - PNEUMONIA [None]
